FAERS Safety Report 10219767 (Version 1)
Quarter: 2014Q2

REPORT INFORMATION
  Report Type: Spontaneous
  Country: US (occurrence: US)
  Receive Date: 20140605
  Receipt Date: 20140605
  Transmission Date: 20141212
  Serious: Yes (Hospitalization, Other)
  Sender: FDA-Public Use
  Company Number: US-BAYER-2014-081253

PATIENT
  Age: 22 Year
  Sex: Female
  Weight: 68.03 kg

DRUGS (4)
  1. YASMIN [Suspect]
  2. OCELLA [Suspect]
  3. OXYCONTIN [Concomitant]
  4. OXYCODONE [Concomitant]

REACTIONS (2)
  - Deep vein thrombosis [Recovered/Resolved]
  - Cholelithiasis [None]
